FAERS Safety Report 26122111 (Version 1)
Quarter: 2025Q4

REPORT INFORMATION
  Report Type: Spontaneous
  Country: US (occurrence: None)
  Receive Date: 20251204
  Receipt Date: 20251204
  Transmission Date: 20260118
  Serious: Yes (Other)
  Sender: FDA-CTU
  Company Number: None

PATIENT
  Age: 54 Year
  Sex: Male

DRUGS (15)
  1. RINVOQ [Suspect]
     Active Substance: UPADACITINIB
     Indication: Colitis ulcerative
     Dosage: 30MG QD ORAL
     Route: 048
  2. VITAMINS [Concomitant]
     Active Substance: VITAMINS
  3. HYDROCHLOROTHIAZIDE [Concomitant]
     Active Substance: HYDROCHLOROTHIAZIDE
  4. IRON [Concomitant]
     Active Substance: IRON
  5. MAGNESIUM OXIDE [Concomitant]
     Active Substance: MAGNESIUM OXIDE
  6. LOSARTAN POTASSIUM [Concomitant]
     Active Substance: LOSARTAN POTASSIUM
  7. TYLENOL [Concomitant]
     Active Substance: ACETAMINOPHEN
  8. FIBER LAX [Concomitant]
     Active Substance: CALCIUM POLYCARBOPHIL
  9. PREDNISONE [Concomitant]
     Active Substance: PREDNISONE
  10. VITAMIN C [Concomitant]
     Active Substance: ASCORBIC ACID
  11. FOLIC ACID [Concomitant]
     Active Substance: FOLIC ACID
  12. ROSUVASTATIN CALCIUM [Concomitant]
     Active Substance: ROSUVASTATIN CALCIUM
  13. GABAPENTIN [Concomitant]
     Active Substance: GABAPENTIN
  14. DULOXETINE [Concomitant]
     Active Substance: DULOXETINE
  15. VITAMIN D [Concomitant]
     Active Substance: VITAMIN D NOS

REACTIONS (1)
  - Thrombosis [None]

NARRATIVE: CASE EVENT DATE: 20251126
